FAERS Safety Report 8544962-X (Version None)
Quarter: 2012Q3

REPORT INFORMATION
  Report Type: 
  Country: None (occurrence: None)
  Receive Date: 20120727
  Receipt Date: 20120724
  Transmission Date: 20120928
  Serious: Yes (Death)
  Sender: FDA-Public Use
  Company Number: CA-ROCHE-1092571

PATIENT
  Sex: Female

DRUGS (4)
  1. AVASTIN [Suspect]
     Indication: OVARIAN CANCER
     Route: 042
     Dates: start: 20111013, end: 20111103
  2. DILAUDID [Concomitant]
  3. XARELTO [Concomitant]
  4. FENTANYL [Concomitant]

REACTIONS (1)
  - DEATH [None]
